FAERS Safety Report 8598320-2 (Version None)
Quarter: 2012Q3

REPORT INFORMATION
  Report Type: 
  Country: None (occurrence: None)
  Receive Date: 20120816
  Receipt Date: 20120806
  Transmission Date: 20120928
  Serious: Yes (Hospitalization, Other)
  Sender: FDA-Public Use
  Company Number: FR-JNJFOC-20120613953

PATIENT
  Age: 81 Year
  Sex: Female
  Weight: 60 kg

DRUGS (10)
  1. XARELTO [Suspect]
     Route: 048
     Dates: start: 20100101, end: 20100101
  2. XARELTO [Suspect]
     Route: 048
     Dates: start: 20100101, end: 20100101
  3. ACETAMINOPHEN [Concomitant]
  4. XARELTO [Suspect]
     Indication: HIP ARTHROPLASTY
     Route: 048
     Dates: start: 20120605, end: 20120610
  5. LOVENOX [Concomitant]
  6. XARELTO [Suspect]
     Indication: THROMBOSIS PROPHYLAXIS
     Route: 048
     Dates: start: 20120605, end: 20120610
  7. XARELTO [Suspect]
     Indication: KNEE ARTHROPLASTY
     Route: 048
     Dates: start: 20120605, end: 20120610
  8. TRAMADOL HCL [Concomitant]
  9. ACUPAN [Concomitant]
  10. XARELTO [Suspect]
     Route: 048
     Dates: start: 20100101, end: 20100101

REACTIONS (7)
  - NOSOCOMIAL INFECTION [None]
  - SYNCOPE [None]
  - PAIN [None]
  - POST PROCEDURAL HAEMATOMA [None]
  - GASTROINTESTINAL DISORDER [None]
  - DYSPEPSIA [None]
  - FEMUR FRACTURE [None]
